FAERS Safety Report 6204348-X (Version None)
Quarter: 2009Q2

REPORT INFORMATION
  Report Type: 
  Country: None (occurrence: None)
  Receive Date: 20090522
  Receipt Date: 20090507
  Transmission Date: 20091009
  Serious: Yes (Hospitalization)
  Sender: FDA-Public Use
  Company Number: IMP_04367_2009

PATIENT
  Age: 15 Year
  Sex: Female

DRUGS (1)
  1. MINOCYCLINE HCL [Suspect]
     Indication: ACNE
     Dosage: 100 MG DAILY

REACTIONS (20)
  - ALANINE AMINOTRANSFERASE INCREASED [None]
  - ASPARTATE AMINOTRANSFERASE INCREASED [None]
  - AUTOIMMUNE THYROIDITIS [None]
  - BASEDOW'S DISEASE [None]
  - BLOOD GLUCOSE INCREASED [None]
  - DERMATITIS EXFOLIATIVE [None]
  - DRUG HYPERSENSITIVITY [None]
  - EOSINOPHILIA [None]
  - HYPOXIA [None]
  - INSOMNIA [None]
  - IRRITABILITY [None]
  - LYMPHADENOPATHY [None]
  - LYMPHOCYTOSIS [None]
  - PALPITATIONS [None]
  - PHARYNGITIS [None]
  - PYREXIA [None]
  - PYURIA [None]
  - RASH ERYTHEMATOUS [None]
  - TRI-IODOTHYRONINE INCREASED [None]
  - WHITE BLOOD CELL COUNT INCREASED [None]
